FAERS Safety Report 12737546 (Version 1)
Quarter: 2016Q3

REPORT INFORMATION
  Report Type: Spontaneous
  Country: AU (occurrence: AU)
  Receive Date: 20160912
  Receipt Date: 20160912
  Transmission Date: 20161109
  Serious: Yes (Other)
  Sender: FDA-Public Use
  Company Number: AU-GLAXOSMITHKLINE-AU2016GSK131529

PATIENT
  Age: 64 Year
  Sex: Male

DRUGS (1)
  1. NICABATE [Suspect]
     Active Substance: NICOTINE
     Indication: EX-TOBACCO USER

REACTIONS (2)
  - Dependence [Unknown]
  - Intentional product use issue [Unknown]
